FAERS Safety Report 8388229-1 (Version None)
Quarter: 2012Q2

REPORT INFORMATION
  Report Type: 
  Country: None (occurrence: None)
  Receive Date: 20120525
  Receipt Date: 20120525
  Transmission Date: 20120825
  Serious: Yes (Other)
  Sender: FDA-Public Use
  Company Number: BE-BAYER-2012-051889

PATIENT
  Age: 37 Year
  Sex: Female
  Weight: 80 kg

DRUGS (4)
  1. EFFEXOR [Concomitant]
     Indication: DEPRESSION
     Dosage: 75 MG, QD
  2. ANDROCUR [Concomitant]
     Indication: HYPERANDROGENISM
     Dosage: 10 MG, QD
  3. AVELOX [Suspect]
     Indication: SINUSITIS
     Dosage: 400 MG, QD
  4. METFORMIN HCL [Concomitant]
     Dosage: 850 MG, BID

REACTIONS (7)
  - PANIC ATTACK [None]
  - TREMOR [None]
  - RESTLESSNESS [None]
  - VISION BLURRED [None]
  - HYPERTENSION [None]
  - CRYING [None]
  - TACHYCARDIA [None]
